FAERS Safety Report 20466414 (Version 1)
Quarter: 2022Q1

REPORT INFORMATION
  Report Type: Spontaneous
  Country: FR (occurrence: FR)
  Receive Date: 20220213
  Receipt Date: 20220213
  Transmission Date: 20220424
  Serious: No
  Sender: FDA-Public Use
  Company Number: FR-UCBSA-2022003437

PATIENT
  Sex: Female

DRUGS (1)
  1. NEUPRO [Suspect]
     Active Substance: ROTIGOTINE
     Indication: Restless legs syndrome
     Dosage: 2 MILLIGRAM, ONCE DAILY (QD)
     Dates: start: 202112

REACTIONS (5)
  - Device adhesion issue [Unknown]
  - Extra dose administered [Unknown]
  - Drug ineffective [Unknown]
  - Incorrect dose administered [Unknown]
  - Restless legs syndrome [Unknown]
